FAERS Safety Report 16129474 (Version 2)
Quarter: 2019Q2

REPORT INFORMATION
  Report Type: Report from Study
  Country: FR (occurrence: FR)
  Receive Date: 20190328
  Receipt Date: 20190412
  Transmission Date: 20190711
  Serious: Yes (Hospitalization)
  Sender: FDA-Public Use
  Company Number: PHHY2019FR070521

PATIENT
  Age: 62 Year
  Sex: Male
  Weight: 87.2 kg

DRUGS (1)
  1. ADOPORT [Suspect]
     Active Substance: TACROLIMUS
     Indication: RENAL TRANSPLANT
     Dosage: 12 MG, UNK
     Route: 048
     Dates: start: 20181112

REACTIONS (3)
  - Acute kidney injury [Recovered/Resolved]
  - Graft complication [Unknown]
  - Ureteric stenosis [Recovered/Resolved]

NARRATIVE: CASE EVENT DATE: 20181231
